FAERS Safety Report 19894274 (Version 1)
Quarter: 2021Q3

REPORT INFORMATION
  Report Type: Spontaneous
  Country: US (occurrence: US)
  Receive Date: 20210928
  Receipt Date: 20210928
  Transmission Date: 20211014
  Serious: No
  Sender: FDA-Public Use
  Company Number: None

PATIENT
  Age: 63 Year
  Sex: Female
  Weight: 60.75 kg

DRUGS (3)
  1. ANASTROZOLE 1MG [Concomitant]
     Active Substance: ANASTROZOLE
  2. IBRANCE [Suspect]
     Active Substance: PALBOCICLIB
     Indication: BREAST CANCER
     Dosage: ?          OTHER FREQUENCY:QD FOR 21/28 DAYS;?
     Route: 048
     Dates: start: 20210129
  3. LISINOPRIL 10MG [Concomitant]
     Active Substance: LISINOPRIL

REACTIONS (4)
  - Breast discomfort [None]
  - Stomatitis [None]
  - Nasal abscess [None]
  - Feeling cold [None]

NARRATIVE: CASE EVENT DATE: 20210928
